FAERS Safety Report 7716256-3 (Version None)
Quarter: 2011Q3

REPORT INFORMATION
  Report Type: 
  Country: None (occurrence: None)
  Receive Date: 20110829
  Receipt Date: 20090203
  Transmission Date: 20111222
  Serious: Yes (Hospitalization, Other)
  Sender: FDA-Public Use
  Company Number: PHHY2010TW13732

PATIENT
  Sex: Male

DRUGS (1)
  1. GLEEVEC [Suspect]
     Indication: GASTROINTESTINAL STROMAL TUMOUR
     Dosage: 400 MG, UNK
     Route: 048
     Dates: start: 20050101

REACTIONS (10)
  - VASCULITIS [None]
  - GASTROINTESTINAL STROMAL TUMOUR [None]
  - APPENDICITIS [None]
  - ABDOMINAL DISCOMFORT [None]
  - BLISTER [None]
  - MUSCLE SPASMS [None]
  - DISCOMFORT [None]
  - VASODILATATION [None]
  - HYPERCHLORHYDRIA [None]
  - NEOPLASM MALIGNANT [None]
